FAERS Safety Report 4386913-8 (Version None)
Quarter: 2004Q2

REPORT INFORMATION
  Report Type: 
  Country: None (occurrence: None)
  Receive Date: 20040623
  Receipt Date: 20040611
  Transmission Date: 20050107
  Serious: Yes (Other)
  Sender: FDA-Public Use
  Company Number: HQWYE369506APR04

PATIENT
  Age: 20 Year
  Sex: Female
  Weight: 49.03 kg

DRUGS (3)
  1. EFFEXOR XR [Suspect]
     Indication: DEPRESSION
     Dosage: SEE IMAGE
     Route: 048
     Dates: start: 20040220, end: 20040201
  2. EFFEXOR XR [Suspect]
     Indication: DEPRESSION
     Dosage: SEE IMAGE
     Route: 048
     Dates: start: 20040201, end: 20040402
  3. UNSPECIFIED CONTRACEPTIVE (UNSPECIFIED CONTRACEPTIVE) [Concomitant]

REACTIONS (7)
  - CONCUSSION [None]
  - CONFUSIONAL STATE [None]
  - DIZZINESS [None]
  - GRAND MAL CONVULSION [None]
  - LOSS OF CONSCIOUSNESS [None]
  - ORTHOSTATIC HYPOTENSION [None]
  - ROAD TRAFFIC ACCIDENT [None]
